FAERS Safety Report 20878595 (Version 1)
Quarter: 2022Q2

REPORT INFORMATION
  Report Type: Spontaneous
  Country: US (occurrence: None)
  Receive Date: 20220526
  Receipt Date: 20220526
  Transmission Date: 20220721
  Serious: No
  Sender: FDA-Public Use
  Company Number: None

PATIENT
  Age: 37 Year
  Sex: Female

DRUGS (1)
  1. TAXOL [Suspect]
     Active Substance: PACLITAXEL
     Indication: Product used for unknown indication

REACTIONS (5)
  - Chest discomfort [None]
  - Erythema [None]
  - Dyspnoea [None]
  - Heart rate increased [None]
  - Infusion related reaction [None]

NARRATIVE: CASE EVENT DATE: 20220506
